FAERS Safety Report 7445012-9 (Version None)
Quarter: 2011Q2

REPORT INFORMATION
  Report Type: 
  Country: None (occurrence: None)
  Receive Date: 20110429
  Receipt Date: 20110419
  Transmission Date: 20111010
  Serious: Yes (Other)
  Sender: FDA-Public Use
  Company Number: IE-NOVOPROD-326729

PATIENT
  Sex: Female
  Weight: 104 kg

DRUGS (3)
  1. METFORMIN [Concomitant]
     Dosage: 1 G, BID
     Route: 048
  2. SINGULAIR [Concomitant]
     Dosage: 10 MG, QD
     Route: 048
  3. VICTOZA [Suspect]
     Indication: TYPE 2 DIABETES MELLITUS
     Dosage: 1.2 MG, QD
     Route: 058
     Dates: start: 20110127, end: 20110301

REACTIONS (2)
  - NAUSEA [None]
  - MALAISE [None]
